FAERS Safety Report 6437645-3 (Version None)
Quarter: 2009Q4

REPORT INFORMATION
  Report Type: 
  Country: None (occurrence: None)
  Receive Date: 20091112
  Receipt Date: 20091104
  Transmission Date: 20100525
  Serious: Yes (Other)
  Sender: FDA-Public Use
  Company Number: A0815066A

PATIENT
  Sex: Female

DRUGS (2)
  1. BACTROBAN [Suspect]
     Indication: IMPETIGO
     Dosage: 1APP TWICE PER DAY
     Route: 061
  2. DIFLORASONE DIACETATE [Concomitant]

REACTIONS (4)
  - HYPERSENSITIVITY [None]
  - IMPETIGO [None]
  - RASH ERYTHEMATOUS [None]
  - SCRATCH [None]
